FAERS Safety Report 18449202 (Version 2)
Quarter: 2020Q4

REPORT INFORMATION
  Report Type: Not Available
  Country: US (occurrence: US)
  Receive Date: 20201030
  Receipt Date: 20201127
  Transmission Date: 20210114
  Serious: Yes (Hospitalization)
  Sender: FDA-Public Use
  Company Number: US-NEUROCRINE BIOSCIENCES INC.-2020NBI03877

PATIENT
  Age: 50 Year
  Sex: Female

DRUGS (9)
  1. PAROXETINE. [Concomitant]
     Active Substance: PAROXETINE
  2. ROPINIROLE. [Concomitant]
     Active Substance: ROPINIROLE
  3. BENZTROPINE. [Concomitant]
     Active Substance: BENZTROPINE
  4. HYDROCHLOROTHIAZIDE. [Concomitant]
     Active Substance: HYDROCHLOROTHIAZIDE
  5. LORATADINE. [Concomitant]
     Active Substance: LORATADINE
  6. INGREZZA [Suspect]
     Active Substance: VALBENAZINE
     Indication: TARDIVE DYSKINESIA
     Route: 048
     Dates: start: 20200703
  7. LOSARTAN. [Concomitant]
     Active Substance: LOSARTAN
  8. PROPRANOLOL [Concomitant]
     Active Substance: PROPRANOLOL HYDROCHLORIDE
  9. DOCUSATE [Concomitant]
     Active Substance: DOCUSATE

REACTIONS (3)
  - Renal failure [Recovered/Resolved]
  - Cardiac murmur [Unknown]
  - Loss of consciousness [Recovered/Resolved]

NARRATIVE: CASE EVENT DATE: 2020
